FAERS Safety Report 23321217 (Version 20)
Quarter: 2024Q4

REPORT INFORMATION
  Report Type: Spontaneous
  Country: CA (occurrence: CA)
  Receive Date: 20231220
  Receipt Date: 20241125
  Transmission Date: 20250115
  Serious: Yes (Life-Threatening, Other)
  Sender: PFIZER
  Company Number: CA-PFIZER INC-PV202300198180

PATIENT
  Age: 80 Year
  Sex: Female
  Weight: 52.4 kg

DRUGS (13)
  1. ZIRABEV [Suspect]
     Active Substance: BEVACIZUMAB-BVZR
     Indication: Ovarian cancer
     Dosage: 7.5 MG/KG, Q 3 WEEKS WITH 6 REPEATS REASSESS
  2. ZIRABEV [Suspect]
     Active Substance: BEVACIZUMAB-BVZR
     Dosage: 393 MG
     Route: 042
     Dates: start: 20240117
  3. ZIRABEV [Suspect]
     Active Substance: BEVACIZUMAB-BVZR
     Dosage: 393 MG
     Route: 042
     Dates: start: 20240207
  4. ZIRABEV [Suspect]
     Active Substance: BEVACIZUMAB-BVZR
     Dosage: 393 MG, EVERY 3 WEEKS
     Route: 042
     Dates: start: 20240228
  5. ZIRABEV [Suspect]
     Active Substance: BEVACIZUMAB-BVZR
     Dosage: 393 MG
     Dates: start: 20240320
  6. ZIRABEV [Suspect]
     Active Substance: BEVACIZUMAB-BVZR
     Dosage: 349 MG
     Dates: start: 20240410
  7. ZIRABEV [Suspect]
     Active Substance: BEVACIZUMAB-BVZR
     Dosage: 368 MG
     Dates: start: 20240612
  8. ZIRABEV [Suspect]
     Active Substance: BEVACIZUMAB-BVZR
     Dosage: 368 MG, EVERY 3 WEEKS
     Route: 042
     Dates: start: 20240703
  9. ZIRABEV [Suspect]
     Active Substance: BEVACIZUMAB-BVZR
     Dosage: 368 MG, EVERY 3 WEEKS
     Route: 042
     Dates: start: 20240724
  10. ZIRABEV [Suspect]
     Active Substance: BEVACIZUMAB-BVZR
     Dosage: 337.5 MG, EVERY 3 WEEKS
     Route: 042
     Dates: start: 20240904
  11. ZIRABEV [Suspect]
     Active Substance: BEVACIZUMAB-BVZR
     Dosage: 337.5 MG, EVERY 3 WEEKS
     Route: 042
     Dates: start: 20240925
  12. ZIRABEV [Suspect]
     Active Substance: BEVACIZUMAB-BVZR
     Dosage: 337.5 MG, EVERY 3 WEEKS
     Route: 042
     Dates: start: 20241016
  13. ZIRABEV [Suspect]
     Active Substance: BEVACIZUMAB-BVZR
     Dosage: IT^S SUPPOSED TO BE=322.5MG
     Route: 042
     Dates: start: 20241106

REACTIONS (12)
  - Ascites [Unknown]
  - Pleural effusion [Unknown]
  - Neuropathy peripheral [Unknown]
  - Weight decreased [Not Recovered/Not Resolved]
  - Fatigue [Unknown]
  - Blood pressure systolic increased [Unknown]
  - Flushing [Unknown]
  - Headache [Not Recovered/Not Resolved]
  - Heart rate increased [Recovering/Resolving]
  - Decreased appetite [Unknown]
  - Giant cell arteritis [Unknown]
  - Off label use [Unknown]

NARRATIVE: CASE EVENT DATE: 20240101
